FAERS Safety Report 21847140 (Version 1)
Quarter: 2023Q1

REPORT INFORMATION
  Report Type: Report from Study
  Country: TW (occurrence: TW)
  Receive Date: 20230111
  Receipt Date: 20230111
  Transmission Date: 20230417
  Serious: Yes (Hospitalization)
  Sender: FDA-Public Use
  Company Number: TW-PTC THERAPEUTICS INC.-TW-2022PTC001988

PATIENT
  Age: 2 Year
  Sex: Female
  Weight: 8.89 kg

DRUGS (1)
  1. ELADOCAGENE EXUPARVOVEC [Suspect]
     Active Substance: ELADOCAGENE EXUPARVOVEC
     Indication: Aromatic L-amino acid decarboxylase deficiency
     Dosage: 1.8 X 1011 VG, ONE TIME DOSE
     Dates: start: 20221123, end: 20221123

REACTIONS (1)
  - Dyskinesia [Not Recovered/Not Resolved]

NARRATIVE: CASE EVENT DATE: 20221231
